FAERS Safety Report 5612614-1 (Version None)
Quarter: 2008Q1

REPORT INFORMATION
  Report Type: 
  Country: None (occurrence: None)
  Receive Date: 20080204
  Receipt Date: 20080125
  Transmission Date: 20080703
  Serious: Yes (Other)
  Sender: FDA-Public Use
  Company Number: B0503498A

PATIENT
  Age: 82 Year
  Sex: Female

DRUGS (8)
  1. VENTOLIN [Suspect]
     Route: 055
  2. SYMBICORT [Concomitant]
  3. SPIRIVA [Concomitant]
  4. ORALOVITE [Concomitant]
  5. FURIX [Concomitant]
  6. ASPIRIN [Concomitant]
  7. PLAVIX [Concomitant]
  8. UNKNOWN DRUG [Concomitant]

REACTIONS (7)
  - ATRIAL FIBRILLATION [None]
  - CHRONIC OBSTRUCTIVE PULMONARY DISEASE [None]
  - DYSPEPSIA [None]
  - HYPOKALAEMIA [None]
  - MEMORY IMPAIRMENT [None]
  - MYOCARDIAL INFARCTION [None]
  - TROPONIN T INCREASED [None]
